FAERS Safety Report 12431578 (Version 2)
Quarter: 2016Q2

REPORT INFORMATION
  Report Type: Spontaneous
  Country: US (occurrence: US)
  Receive Date: 20160603
  Receipt Date: 20160624
  Transmission Date: 20160815
  Serious: No
  Sender: FDA-Public Use
  Company Number: US-HORIZON-PEN-0242-2016

PATIENT
  Age: 59 Year
  Sex: Male

DRUGS (2)
  1. PENNSAID [Suspect]
     Active Substance: DICLOFENAC SODIUM
     Indication: EPICONDYLITIS
     Dosage: 2 PUMPS BID AS NEEDED
     Dates: start: 2016, end: 20160614
  2. COSENTYX [Concomitant]
     Active Substance: SECUKINUMAB

REACTIONS (6)
  - Application site pruritus [Recovering/Resolving]
  - Application site erythema [Recovering/Resolving]
  - Dry skin [Recovering/Resolving]
  - Skin exfoliation [Recovering/Resolving]
  - Application site rash [Recovering/Resolving]
  - Off label use [Unknown]

NARRATIVE: CASE EVENT DATE: 2016
